FAERS Safety Report 16813167 (Version 1)
Quarter: 2019Q3

REPORT INFORMATION
  Report Type: Other
  Country: US (occurrence: US)
  Receive Date: 20190916
  Receipt Date: 20190916
  Transmission Date: 20191005
  Serious: No
  Sender: FDA-Public Use
  Company Number: US-LEADIANT BIOSCIENCES INC-2019STPI000215

PATIENT
  Age: 42 Year
  Sex: Male

DRUGS (5)
  1. LEVEMIR [Concomitant]
     Active Substance: INSULIN DETEMIR
  2. GLEOSTINE [Concomitant]
     Active Substance: LOMUSTINE
  3. KEPPRA [Concomitant]
     Active Substance: LEVETIRACETAM
  4. HUMALOG [Concomitant]
     Active Substance: INSULIN LISPRO
  5. MATULANE [Suspect]
     Active Substance: PROCARBAZINE HYDROCHLORIDE
     Indication: BRAIN NEOPLASM MALIGNANT
     Dosage: 100 MILLIGRAM, DAYS 8 TO 21 FOR 6 CYCLES
     Dates: start: 20190211

REACTIONS (1)
  - Nausea [Not Recovered/Not Resolved]

NARRATIVE: CASE EVENT DATE: 201903
